FAERS Safety Report 7071919-0 (Version None)
Quarter: 2010Q4

REPORT INFORMATION
  Report Type: 
  Country: None (occurrence: None)
  Receive Date: 20101029
  Receipt Date: 20091104
  Transmission Date: 20110411
  Serious: No
  Sender: FDA-Public Use
  Company Number: A0815055A

PATIENT
  Age: 65 Year
  Sex: Female

DRUGS (7)
  1. ADVAIR DISKUS 100/50 [Suspect]
     Indication: ASTHMA
     Dosage: 1PUFF SINGLE DOSE
     Route: 055
     Dates: start: 20091102, end: 20091102
  2. CORTISONE [Concomitant]
  3. ALBUTEROL [Concomitant]
  4. NORVASC [Concomitant]
  5. PREMARIN [Concomitant]
  6. SINGULAIR [Concomitant]
  7. ZYRTEC [Concomitant]

REACTIONS (2)
  - PAIN [None]
  - PRURITUS GENERALISED [None]
